FAERS Safety Report 6596817-8 (Version None)
Quarter: 2010Q1

REPORT INFORMATION
  Report Type: 
  Country: None (occurrence: None)
  Receive Date: 20100219
  Receipt Date: 20100219
  Transmission Date: 20100710
  Serious: Yes (Hospitalization)
  Sender: FDA-Public Use
  Company Number: None

PATIENT
  Sex: Female
  Weight: 62.7 kg

DRUGS (1)
  1. OXALIPLATIN [Suspect]
     Indication: COLON CANCER
     Dosage: 150MG IV
     Route: 042
     Dates: start: 20100121

REACTIONS (2)
  - ANAPHYLACTIC REACTION [None]
  - CHEST PAIN [None]
